FAERS Safety Report 6701186-6 (Version None)
Quarter: 2010Q2

REPORT INFORMATION
  Report Type: 
  Country: None (occurrence: None)
  Receive Date: 20100428
  Receipt Date: 20100428
  Transmission Date: 20101027
  Serious: Yes (Other)
  Sender: FDA-Public Use
  Company Number: None

PATIENT
  Age: 51 Year
  Sex: Female
  Weight: 63.5036 kg

DRUGS (1)
  1. BUPROPION HCL [Suspect]
     Indication: DEPRESSION
     Dosage: 300MG XL PER DAY PO
     Route: 048
     Dates: start: 20100421, end: 20100426

REACTIONS (2)
  - PRODUCT SUBSTITUTION ISSUE [None]
  - RASH PRURITIC [None]
